FAERS Safety Report 15155811 (Version 1)
Quarter: 2018Q3

REPORT INFORMATION
  Report Type: Spontaneous
  Country: SE (occurrence: SE)
  Receive Date: 20180717
  Receipt Date: 20180717
  Transmission Date: 20181010
  Serious: Yes (Other)
  Sender: FDA-Public Use
  Company Number: SE-US WORLDMEDS, LLC-STA_00018014

PATIENT
  Age: 53 Year
  Sex: Female

DRUGS (8)
  1. ESOMEPRAZOLE [Concomitant]
     Active Substance: ESOMEPRAZOLE
  2. APOMORPHINE HYDROCHLORIDE [Suspect]
     Active Substance: APOMORPHINE HYDROCHLORIDE
     Indication: PARKINSON^S DISEASE
     Route: 058
     Dates: start: 20140317
  3. DOMPERIDON EBB [Concomitant]
  4. LEVAXIN [Concomitant]
     Active Substance: LEVOTHYROXINE SODIUM
  5. NEUPRO [Concomitant]
     Active Substance: ROTIGOTINE
  6. BEHEPAN [Concomitant]
     Active Substance: HYDROXOCOBALAMIN
  7. SINEMET [Concomitant]
     Active Substance: CARBIDOPA\LEVODOPA
  8. FOLACIN [Concomitant]
     Active Substance: FOLIC ACID

REACTIONS (1)
  - Tachycardia paroxysmal [Not Recovered/Not Resolved]

NARRATIVE: CASE EVENT DATE: 201404
